FAERS Safety Report 25165407 (Version 1)
Quarter: 2025Q2

REPORT INFORMATION
  Report Type: Report from Study
  Country: DE (occurrence: DE)
  Receive Date: 20250407
  Receipt Date: 20250407
  Transmission Date: 20250716
  Serious: Yes (Death, Other)
  Sender: CELLTRION
  Company Number: DE-ROCHE-3542048

PATIENT

DRUGS (4)
  1. BEVACIZUMAB [Suspect]
     Active Substance: BEVACIZUMAB
     Indication: Neoplasm
     Dosage: DATE OF MOST RECENT DOSE OF CANCER TREATMENT 1 PRIOR TO AE/SAE ONSET 15/JAN/2024
     Route: 042
     Dates: start: 20231211, end: 20240115
  2. LEUCOVORIN SODIUM [Suspect]
     Active Substance: LEUCOVORIN SODIUM
     Indication: Neoplasm
     Dosage: 744 MG, Q2WEEKS
     Route: 042
     Dates: start: 20231211, end: 20240115
  3. FLUOROURACIL [Suspect]
     Active Substance: FLUOROURACIL
     Indication: Neoplasm
     Dosage: 4464 MG, Q2WEEKS
     Route: 042
     Dates: start: 20231211, end: 20240115
  4. OXALIPLATIN [Suspect]
     Active Substance: OXALIPLATIN
     Indication: Neoplasm
     Dosage: 158.1 MG, Q2WEEKS
     Route: 042
     Dates: start: 20231211, end: 20240115

REACTIONS (4)
  - Neoplasm malignant [Fatal]
  - Influenza like illness [Recovered/Resolved]
  - Diarrhoea [Recovered/Resolved]
  - Hypertension [Not Recovered/Not Resolved]

NARRATIVE: CASE EVENT DATE: 20240129
